FAERS Safety Report 13442057 (Version 1)
Quarter: 2017Q2

REPORT INFORMATION
  Report Type: Spontaneous
  Country: US (occurrence: US)
  Receive Date: 20170414
  Receipt Date: 20170414
  Transmission Date: 20170830
  Serious: No
  Sender: FDA-Public Use
  Company Number: US-BRISTOL-MYERS SQUIBB COMPANY-BMS-2017-032138

PATIENT
  Age: 61 Year
  Sex: Male

DRUGS (1)
  1. SPRYCEL [Suspect]
     Active Substance: DASATINIB
     Indication: LIP AND/OR ORAL CAVITY CANCER
     Dosage: 1 TAB, QD
     Route: 048

REACTIONS (2)
  - Dyspnoea [Unknown]
  - Product use in unapproved indication [Unknown]
